FAERS Safety Report 23768693 (Version 1)
Quarter: 2024Q2

REPORT INFORMATION
  Report Type: Spontaneous
  Country: US (occurrence: None)
  Receive Date: 20240420
  Receipt Date: 20240420
  Transmission Date: 20240715
  Serious: No
  Sender: FDA-Public Use
  Company Number: None

PATIENT
  Age: 66 Year
  Sex: Male
  Weight: 121.2 kg

DRUGS (8)
  1. CYCLOPHOSPHAMIDE [Suspect]
     Active Substance: CYCLOPHOSPHAMIDE
     Dates: end: 20240404
  2. CYTARABINE [Suspect]
     Active Substance: CYTARABINE
     Dates: end: 20240401
  3. DASATINIB [Suspect]
     Active Substance: DASATINIB
     Dates: end: 20240404
  4. DEXAMETHASONE [Suspect]
     Active Substance: DEXAMETHASONE
     Dates: end: 20240404
  5. DOXORUBICIN HYDROCHLORIDE [Suspect]
     Active Substance: DOXORUBICIN HYDROCHLORIDE
     Dates: end: 20240404
  6. MESNA [Suspect]
     Active Substance: MESNA
     Dates: end: 20240403
  7. METHOTREXATE [Suspect]
     Active Substance: METHOTREXATE
     Dates: end: 20240308
  8. VINCRISTINE SULFATE [Suspect]
     Active Substance: VINCRISTINE SULFATE
     Dates: end: 20240404

REACTIONS (7)
  - Chest pain [None]
  - Dyspnoea [None]
  - Arthralgia [None]
  - Haemoglobin decreased [None]
  - Chest discomfort [None]
  - Electrocardiogram abnormal [None]
  - Myocardial ischaemia [None]

NARRATIVE: CASE EVENT DATE: 20240404
